FAERS Safety Report 21866891 (Version 10)
Quarter: 2024Q2

REPORT INFORMATION
  Report Type: Other
  Country: CA (occurrence: None)
  Receive Date: 20230116
  Receipt Date: 20240501
  Transmission Date: 20240716
  Serious: No
  Sender: FDA-Public Use
  Company Number: CA-ROCHE-3260395

PATIENT
  Sex: Male

DRUGS (3)
  1. OCREVUS [Suspect]
     Active Substance: OCRELIZUMAB
     Indication: Relapsing-remitting multiple sclerosis
     Dosage: 300 MG AT DAY 0 AND 14, THEN 600 MG EVERY 6 MONTH
     Route: 042
     Dates: start: 20210723
  2. VALTREX [Concomitant]
     Active Substance: VALACYCLOVIR HYDROCHLORIDE
  3. DULOXETINE [Concomitant]
     Active Substance: DULOXETINE

REACTIONS (6)
  - Back pain [Recovering/Resolving]
  - Fatigue [Recovered/Resolved]
  - Herpes ophthalmic [Recovered/Resolved]
  - Nasopharyngitis [Recovered/Resolved]
  - Ulcer [Recovering/Resolving]
  - Stress [Unknown]
